FAERS Safety Report 4477894-7 (Version None)
Quarter: 2004Q4

REPORT INFORMATION
  Report Type: 
  Country: None (occurrence: None)
  Receive Date: 20041018
  Receipt Date: 20041015
  Transmission Date: 20050328
  Serious: Yes (Hospitalization, Disabling)
  Sender: FDA-Public Use
  Company Number: CH-MERCK-0410CHE00032

PATIENT
  Age: 52 Year
  Sex: Male

DRUGS (2)
  1. VIOXX [Suspect]
     Indication: ANKYLOSING SPONDYLITIS
     Route: 048
     Dates: start: 20010101, end: 20030501
  2. VIOXX [Suspect]
     Route: 048
     Dates: start: 20040101, end: 20040901

REACTIONS (1)
  - MYOCARDIAL INFARCTION [None]
